FAERS Safety Report 10514171 (Version 1)
Quarter: 2014Q4

REPORT INFORMATION
  Report Type: Spontaneous
  Country: US (occurrence: US)
  Receive Date: 20141013
  Receipt Date: 20141013
  Transmission Date: 20150528
  Serious: No
  Sender: FDA-Public Use
  Company Number: US-PFIZER INC-2014277706

PATIENT
  Age: 61 Year
  Sex: Female
  Weight: 68.03 kg

DRUGS (3)
  1. XANAX [Suspect]
     Active Substance: ALPRAZOLAM
     Dosage: TWO AND HALF OF 1MG (2.5MG) AT BEDTIME AND WHEN NEEDED
     Dates: start: 201410
  2. QUETIAPINE [Concomitant]
     Active Substance: QUETIAPINE
     Dosage: 300 MG, 1X/DAY
  3. XANAX [Suspect]
     Active Substance: ALPRAZOLAM
     Indication: ANXIETY
     Dosage: TWO AND HALF OF 1MG (2.5MG) AT BEDTIME AND WHEN NEEDED
     Dates: start: 2000

REACTIONS (2)
  - Product quality issue [Unknown]
  - Drug ineffective [Unknown]

NARRATIVE: CASE EVENT DATE: 201410
